FAERS Safety Report 21394258 (Version 1)
Quarter: 2022Q3

REPORT INFORMATION
  Report Type: Spontaneous
  Country: FR (occurrence: FR)
  Receive Date: 20220930
  Receipt Date: 20220930
  Transmission Date: 20221027
  Serious: Yes (Hospitalization)
  Sender: FDA-Public Use
  Company Number: None

PATIENT
  Age: 67 Year
  Sex: Female
  Weight: 51.55 kg

DRUGS (5)
  1. GABAPENTIN [Suspect]
     Active Substance: GABAPENTIN
     Indication: Muscle spasms
     Dosage: UNIT DOSE :   1.1 GRAM, DURATION : 40 DAYS, FREQUENCY TIME : 1 DAY
     Route: 065
     Dates: start: 20220629, end: 20220808
  2. POLYETHYLENE GLYCOLS [Suspect]
     Active Substance: POLYETHYLENE GLYCOLS
     Indication: Colonoscopy
     Dosage: UNIT DOSE : 1 DOSAGE FORM ,  FREQUENCY TIME : 1 TOTAL, DURATION : 1 DAY
     Route: 065
     Dates: start: 20220807, end: 20220807
  3. BETAMETHASONE DIPROPIONATE\BETAMETHASONE SODIUM PHOSPHATE [Concomitant]
     Active Substance: BETAMETHASONE DIPROPIONATE\BETAMETHASONE SODIUM PHOSPHATE
     Indication: Product used for unknown indication
     Dates: end: 20220808
  4. SALAZOPYRINE [Concomitant]
     Active Substance: SULFASALAZINE
     Indication: Psoriatic arthropathy
     Dosage: UNIT DOSE  : 1 GRAM, FREQUENCY TIME : 1 DAY
     Dates: end: 20220808
  5. SIMPONI [Concomitant]
     Active Substance: GOLIMUMAB
     Indication: Psoriatic arthropathy
     Dosage: UNIT DOSE :   45 MG, FREQUENCY TIME : 1 MONTH
     Dates: end: 20220808

REACTIONS (3)
  - Coma [Recovered/Resolved]
  - Seizure [Recovered/Resolved]
  - Hyponatraemia [Recovered/Resolved]

NARRATIVE: CASE EVENT DATE: 20220808
